FAERS Safety Report 23499422 (Version 1)
Quarter: 2024Q1

REPORT INFORMATION
  Report Type: Spontaneous
  Country: US (occurrence: US)
  Receive Date: 20240208
  Receipt Date: 20240208
  Transmission Date: 20240409
  Serious: No
  Sender: FDA-Public Use
  Company Number: US-DRL-USA-LIT/USA/24/0001726

PATIENT
  Age: 65 Year
  Sex: Female

DRUGS (10)
  1. DOXYCYCLINE [Suspect]
     Active Substance: DOXYCYCLINE
     Indication: Staphylococcal infection
  2. SOTROVIMAB [Concomitant]
     Active Substance: SOTROVIMAB
     Indication: COVID-19
     Dosage: AS A SINGLE DOSE
  3. AZITHROMYCIN [Concomitant]
     Active Substance: AZITHROMYCIN
     Indication: COVID-19 pneumonia
     Dosage: 500MG PER MOUTH ON DAY 1
  4. AZITHROMYCIN [Concomitant]
     Active Substance: AZITHROMYCIN
     Dosage: 250MG PER MOUTH DAILY FOR DAYS 2-5
  5. PREDNISONE [Concomitant]
     Active Substance: PREDNISONE
     Indication: COVID-19 pneumonia
     Dosage: PER MOUTH DAILY FOR 5 DAYS
     Route: 048
  6. CLINDAMYCIN [Concomitant]
     Active Substance: CLINDAMYCIN
     Indication: Bacterial infection
  7. CEPHALEXIN [Concomitant]
     Active Substance: CEPHALEXIN
     Indication: Costochondritis
  8. SULFAMETHOXAZOLE\TRIMETHOPRIM [Concomitant]
     Active Substance: SULFAMETHOXAZOLE\TRIMETHOPRIM
     Dosage: 160-800MG TWICE A DAY
  9. CEFPODOXIME [Concomitant]
     Active Substance: CEFPODOXIME
     Dosage: 400MG EVERY 12H
  10. CEFTRIAXONE [Concomitant]
     Active Substance: CEFTRIAXONE\CEFTRIAXONE SODIUM
     Dosage: 1 G/DAY

REACTIONS (1)
  - Drug ineffective [Unknown]
